FAERS Safety Report 20769098 (Version 1)
Quarter: 2022Q2

REPORT INFORMATION
  Report Type: Report from Study
  Country: US (occurrence: US)
  Receive Date: 20220429
  Receipt Date: 20220429
  Transmission Date: 20220721
  Serious: Yes (Hospitalization)
  Sender: FDA-Public Use
  Company Number: US-SAMOHPHARM-2022001723

PATIENT

DRUGS (4)
  1. CYSTADANE [Suspect]
     Active Substance: BETAINE
     Indication: Eagle Barrett syndrome
     Dosage: 650 MILLIGRAM, BID
     Route: 048
     Dates: start: 202112
  2. CYSTADANE [Suspect]
     Active Substance: BETAINE
     Indication: Methylmalonic aciduria
     Dosage: 700 MILLIGRAM, BID
     Route: 048
  3. ACETAMINOPHEN\OXYCODONE HYDROCHLORIDE [Concomitant]
     Active Substance: ACETAMINOPHEN\OXYCODONE HYDROCHLORIDE
     Indication: Product used for unknown indication
  4. SEROQUEL [Concomitant]
     Active Substance: QUETIAPINE FUMARATE
     Indication: Product used for unknown indication

REACTIONS (2)
  - Rhinovirus infection [Not Recovered/Not Resolved]
  - Overdose [Recovered/Resolved]

NARRATIVE: CASE EVENT DATE: 20220412
